FAERS Safety Report 8134464-7 (Version None)
Quarter: 2012Q1

REPORT INFORMATION
  Report Type: 
  Country: None (occurrence: None)
  Receive Date: 20120214
  Receipt Date: 20120214
  Transmission Date: 20120608
  Serious: Yes (Other)
  Sender: FDA-Public Use
  Company Number: None

PATIENT
  Age: 39 Year
  Sex: Male
  Weight: 56.699 kg

DRUGS (1)
  1. LEVETIRACETAM [Suspect]
     Indication: CONVULSION
     Dosage: 1000MG
     Route: 048
     Dates: start: 20120128, end: 20120213

REACTIONS (3)
  - ADVERSE DRUG REACTION [None]
  - MANIA [None]
  - IMPAIRED SELF-CARE [None]
